FAERS Safety Report 11073951 (Version 18)
Quarter: 2022Q4

REPORT INFORMATION
  Report Type: Other
  Country: CA (occurrence: CA)
  Receive Date: 20150429
  Receipt Date: 20221004
  Transmission Date: 20230112
  Serious: Yes (Other)
  Sender: FDA-Public Use
  Company Number: CA-ROCHE-1512211

PATIENT
  Age: 52 Year
  Sex: Male

DRUGS (12)
  1. XOLAIR [Suspect]
     Active Substance: OMALIZUMAB
     Indication: Asthma
     Route: 058
     Dates: start: 20051024
  2. XOLAIR [Suspect]
     Active Substance: OMALIZUMAB
     Route: 058
     Dates: start: 20060816
  3. XOLAIR [Suspect]
     Active Substance: OMALIZUMAB
     Route: 058
     Dates: start: 20160218
  4. XOLAIR [Suspect]
     Active Substance: OMALIZUMAB
     Route: 058
     Dates: start: 20160623
  5. XOLAIR [Suspect]
     Active Substance: OMALIZUMAB
     Route: 058
     Dates: start: 20161110
  6. XOLAIR [Suspect]
     Active Substance: OMALIZUMAB
     Route: 058
     Dates: start: 20170119
  7. XOLAIR [Suspect]
     Active Substance: OMALIZUMAB
     Route: 058
     Dates: start: 20170330
  8. XOLAIR [Suspect]
     Active Substance: OMALIZUMAB
     Route: 058
     Dates: start: 20171012
  9. XOLAIR [Suspect]
     Active Substance: OMALIZUMAB
     Route: 058
  10. INFLUENZA VIRUS VACCINE [Suspect]
     Active Substance: INFLUENZA VIRUS VACCINE
     Indication: Immunisation
     Route: 065
     Dates: start: 201611
  11. PREDNISONE [Concomitant]
     Active Substance: PREDNISONE
     Indication: Product used for unknown indication
     Route: 065
  12. SYMBICORT [Concomitant]
     Active Substance: BUDESONIDE\FORMOTEROL FUMARATE DIHYDRATE
     Indication: Product used for unknown indication
     Route: 065

REACTIONS (26)
  - Wrist fracture [Unknown]
  - Presyncope [Recovering/Resolving]
  - Hypotension [Unknown]
  - Pruritus [Unknown]
  - Pyrexia [Recovering/Resolving]
  - Blood potassium increased [Unknown]
  - Dyspnoea [Recovered/Resolved]
  - Erythema [Unknown]
  - Alcohol intolerance [Unknown]
  - Night sweats [Unknown]
  - Ligament sprain [Unknown]
  - Haemoptysis [Unknown]
  - Nasopharyngitis [Recovering/Resolving]
  - Miliaria [Unknown]
  - Productive cough [Recovered/Resolved]
  - Hypertension [Unknown]
  - Gastrooesophageal reflux disease [Unknown]
  - Headache [Unknown]
  - Fatigue [Unknown]
  - Influenza like illness [Recovering/Resolving]
  - Cough [Recovering/Resolving]
  - Nasal congestion [Recovered/Resolved]
  - Tinnitus [Unknown]
  - Skin lesion [Unknown]
  - Skin lesion [Unknown]
  - Wrong technique in product usage process [Unknown]

NARRATIVE: CASE EVENT DATE: 20100703
